FAERS Safety Report 4375794-4 (Version None)
Quarter: 2004Q2

REPORT INFORMATION
  Report Type: 
  Country: None (occurrence: None)
  Receive Date: 20040611
  Receipt Date: 20040602
  Transmission Date: 20050107
  Serious: Yes (Death, Other)
  Sender: FDA-Public Use
  Company Number: PHBS2004DE07376

PATIENT
  Age: 53 Year
  Sex: Male

DRUGS (9)
  1. CYCLOSPORINE [Suspect]
     Indication: LUNG TRANSPLANT
     Dosage: 90 MG/D
     Route: 065
  2. MYCOPHENOLATE MOFETIL [Suspect]
     Indication: LUNG TRANSPLANT
     Dosage: 3000 MG/D
     Route: 065
  3. METHYLPREDNISOLONE [Suspect]
     Indication: LUNG TRANSPLANT
     Dosage: 250 MG, ONCE/SINGLE
     Route: 065
  4. PREDNISONE [Suspect]
     Indication: LUNG TRANSPLANT
     Dosage: 40 MG TO 10 MG OVER 20 DAYS
     Route: 065
  5. CEFTAZIDIME [Concomitant]
  6. TOBRAMYCIN [Concomitant]
  7. FLUCLOXACILLIN [Concomitant]
  8. GANCICLOVIR [Concomitant]
  9. VORICONAZOLE [Concomitant]

REACTIONS (8)
  - BACTERIAL INFECTION [None]
  - C-REACTIVE PROTEIN INCREASED [None]
  - FUNGAL SEPSIS [None]
  - LUNG INFECTION [None]
  - LUNG INFILTRATION [None]
  - PULMONARY HAEMORRHAGE [None]
  - RENAL FAILURE ACUTE [None]
  - WHITE BLOOD CELL COUNT INCREASED [None]
